FAERS Safety Report 19701768 (Version 1)
Quarter: 2021Q3

REPORT INFORMATION
  Report Type: Report from Study
  Country: US (occurrence: US)
  Receive Date: 20210813
  Receipt Date: 20210813
  Transmission Date: 20211014
  Serious: Yes (Other)
  Sender: FDA-Public Use
  Company Number: US-JNJFOC-20210805788

PATIENT
  Age: 32 Year
  Sex: Female

DRUGS (8)
  1. METHADONE HCL [Concomitant]
     Active Substance: METHADONE HYDROCHLORIDE
  2. CALCIPOTRIENE. [Concomitant]
     Active Substance: CALCIPOTRIENE
     Dosage: FOAM 0.005%,
  3. STELARA [Suspect]
     Active Substance: USTEKINUMAB
     Indication: PSORIASIS
     Route: 058
     Dates: start: 20180208
  4. STELARA [Suspect]
     Active Substance: USTEKINUMAB
  5. CLOBETASOL PROPRIONATE [Concomitant]
     Active Substance: CLOBETASOL PROPIONATE
     Dosage: CREAM 0.05%.
  6. DOXYCYCLINE. [Concomitant]
     Active Substance: DOXYCYCLINE
  7. BETAMETHASONE. [Concomitant]
     Active Substance: BETAMETHASONE
     Dosage: CRE 0.05%.
  8. KETOCONAZOLE. [Concomitant]
     Active Substance: KETOCONAZOLE

REACTIONS (8)
  - Exposure during pregnancy [Recovered/Resolved]
  - Fatigue [Recovered/Resolved]
  - Ovarian cyst [Not Recovered/Not Resolved]
  - Vasodilatation [Not Recovered/Not Resolved]
  - Arthralgia [Not Recovered/Not Resolved]
  - Arachnoid cyst [Not Recovered/Not Resolved]
  - Abortion spontaneous [Unknown]
  - Inappropriate schedule of product administration [Not Recovered/Not Resolved]

NARRATIVE: CASE EVENT DATE: 20210628
